FAERS Safety Report 4556764-X (Version None)
Quarter: 2005Q1

REPORT INFORMATION
  Report Type: 
  Country: None (occurrence: None)
  Receive Date: 20050114
  Receipt Date: 20050107
  Transmission Date: 20050727
  Serious: Yes (Life-Threatening, Hospitalization, Disabling, Other)
  Sender: FDA-Public Use
  Company Number: 2005006538

PATIENT
  Age: 29 Year
  Sex: Female
  Weight: 58.9676 kg

DRUGS (1)
  1. DEPO-PROVERA [Suspect]
     Indication: CONTRACEPTION
     Dosage: 150 MG (150 MG, EVERY THREE MONTHS, SINGLE INJECTION), INTRAMUSCULAR
     Route: 030
     Dates: start: 20040401, end: 20040401

REACTIONS (6)
  - DEPRESSION [None]
  - DRUG ABUSER [None]
  - IMPAIRED WORK ABILITY [None]
  - MEMORY IMPAIRMENT [None]
  - POLYSUBSTANCE ABUSE [None]
  - SUICIDAL IDEATION [None]
